FAERS Safety Report 4558157-8 (Version None)
Quarter: 2005Q1

REPORT INFORMATION
  Report Type: 
  Country: None (occurrence: None)
  Receive Date: 20050103
  Receipt Date: 20041029
  Transmission Date: 20050727
  Serious: Yes (Other)
  Sender: FDA-Public Use
  Company Number: 2004UW22428

PATIENT
  Age: 66 Year
  Sex: Female
  Weight: 62.5 kg

DRUGS (5)
  1. CRESTOR [Suspect]
     Indication: BLOOD CHOLESTEROL INCREASED
     Dosage: 10 MG PO
     Route: 048
  2. PRILOSEC [Concomitant]
  3. LOTREL [Concomitant]
  4. ESTRATEST [Concomitant]
  5. PEPCID [Concomitant]

REACTIONS (2)
  - POLLAKIURIA [None]
  - PRURITUS GENITAL [None]
